FAERS Safety Report 14946148 (Version 2)
Quarter: 2018Q2

REPORT INFORMATION
  Report Type: Report from Study
  Country: JP (occurrence: JP)
  Receive Date: 20180529
  Receipt Date: 20180614
  Transmission Date: 20180711
  Serious: Yes (Hospitalization, Other)
  Sender: FDA-Public Use
  Company Number: JP-JT-EVA201801044KERYXP-001

PATIENT
  Age: 53 Year
  Sex: Male
  Weight: 62 kg

DRUGS (28)
  1. RIONA [Suspect]
     Active Substance: FERRIC CITRATE ANHYDROUS
     Indication: HYPERPHOSPHATAEMIA
     Dosage: 750 MG, QD
     Route: 048
     Dates: start: 20160329, end: 20160620
  2. SELTOUCH [Concomitant]
     Active Substance: FELBINAC
     Dosage: 2 DF, QD
     Route: 062
     Dates: start: 20170727
  3. CODEINE PHOSPHATE                  /00012605/ [Concomitant]
     Active Substance: CODEINE PHOSPHATE
     Dosage: 10 MG, QD
     Route: 048
     Dates: start: 20171130
  4. NESP [Concomitant]
     Active Substance: DARBEPOETIN ALFA
     Indication: NEPHROGENIC ANAEMIA
     Dosage: 20 MICRO-G, UNK
     Route: 042
  5. NESP [Concomitant]
     Active Substance: DARBEPOETIN ALFA
     Dosage: 20 MICRO-G, UNK
     Route: 042
  6. LOXOPROFEN SODIUM HYDRATE [Concomitant]
     Active Substance: LOXOPROFEN SODIUM DIHYDRATE
     Dosage: 60 MG, QD
     Route: 048
  7. CALCITRIOL. [Concomitant]
     Active Substance: CALCITRIOL
     Dosage: 3 MICRO-G, QD
     Route: 048
     Dates: start: 20170928, end: 20171116
  8. TAKEPRON [Concomitant]
     Active Substance: LANSOPRAZOLE
     Indication: HYPERCHLORHYDRIA
     Dosage: 30 MG, QD
     Route: 048
  9. NU-LOTAN [Concomitant]
     Active Substance: LOSARTAN POTASSIUM
     Dosage: 50 MG, QD
     Route: 048
  10. LOCOID [Concomitant]
     Active Substance: HYDROCORTISONE BUTYRATE
     Dosage: 2 DF, QD
     Route: 062
     Dates: start: 20170727
  11. CALTAN [Concomitant]
     Active Substance: CALCIUM CARBONATE
     Dosage: 3000 MG, QD
     Route: 048
     Dates: start: 20171201
  12. NESP [Concomitant]
     Active Substance: DARBEPOETIN ALFA
     Dosage: 20 MICRO-G, UNK
  13. LOPRESOR                           /00376902/ [Concomitant]
     Active Substance: METOPROLOL TARTRATE
     Dosage: 120 MG, QD
     Route: 048
  14. CALCITRIOL. [Concomitant]
     Active Substance: CALCITRIOL
     Indication: HYPERPARATHYROIDISM SECONDARY
     Dosage: 0.25 MICRO-G, QD
     Route: 048
     Dates: end: 20160815
  15. RIONA [Suspect]
     Active Substance: FERRIC CITRATE ANHYDROUS
     Dosage: 1500 MG, QD
     Route: 048
     Dates: start: 20160621
  16. FOSRENOL [Concomitant]
     Active Substance: LANTHANUM CARBONATE
     Indication: HYPERPHOSPHATAEMIA
     Dosage: 1500 MG, QD
     Route: 048
     Dates: start: 20160329
  17. BESOFTEN [Concomitant]
     Active Substance: PENTOSAN POLYSULFATE SODIUM
     Dosage: 1 DF, QD
     Route: 062
     Dates: start: 20170525
  18. CALCITRIOL. [Concomitant]
     Active Substance: CALCITRIOL
     Dosage: 1.5 MICRO-G, QD
     Route: 048
     Dates: start: 20171201, end: 20171212
  19. CALCITRIOL. [Concomitant]
     Active Substance: CALCITRIOL
     Dosage: 0.5 MICRO-G, QD
     Route: 048
     Dates: start: 20180404
  20. VOLTAREN [Concomitant]
     Active Substance: DICLOFENAC SODIUM
     Indication: PRODUCT USED FOR UNKNOWN INDICATION
     Dosage: 1 DF, QD
     Route: 062
     Dates: start: 20170302
  21. REMITCH [Concomitant]
     Active Substance: NALFURAFINE HYDROCHLORIDE
     Dosage: 5 MICRO-G, QD
     Route: 048
  22. KENEI G [Concomitant]
     Active Substance: GLYCERIN
     Dosage: 60 ML, QD
     Route: 054
  23. CALCITRIOL. [Concomitant]
     Active Substance: CALCITRIOL
     Dosage: 2 MICRO-G, QD
     Route: 048
     Dates: start: 20171117, end: 20171130
  24. CALTAN [Concomitant]
     Active Substance: CALCIUM CARBONATE
     Indication: HYPERPHOSPHATAEMIA
     Dosage: 6000 MG, QD
     Route: 048
     Dates: start: 20170928, end: 20171130
  25. ETELCALCETIDE HYDROCHLORIDE [Concomitant]
     Active Substance: ETELCALCETIDE HYDROCHLORIDE
     Indication: HYPERPARATHYROIDISM SECONDARY
     Dosage: 5 MG, QD
     Route: 042
     Dates: start: 20170404
  26. KERATINAMIN [Concomitant]
     Active Substance: UREA
     Dosage: 2 DF, QD
     Route: 062
     Dates: start: 20170727
  27. CALCITRIOL. [Concomitant]
     Active Substance: CALCITRIOL
     Dosage: 0.75 MICRO-G, QD
     Route: 048
     Dates: start: 20171213, end: 20180403
  28. NESP [Concomitant]
     Active Substance: DARBEPOETIN ALFA
     Dosage: 20 MICRO-G, UNK

REACTIONS (2)
  - Rib fracture [Unknown]
  - Hyperparathyroidism secondary [Recovered/Resolved]

NARRATIVE: CASE EVENT DATE: 20171002
